FAERS Safety Report 13538232 (Version 12)
Quarter: 2018Q3

REPORT INFORMATION
  Report Type: Spontaneous
  Country: US (occurrence: US)
  Receive Date: 20170512
  Receipt Date: 20180808
  Transmission Date: 20181010
  Serious: Yes (Hospitalization, Other)
  Sender: FDA-Public Use
  Company Number: US-ROCHE-1933695

PATIENT
  Age: 57 Year
  Sex: Female
  Weight: 88.53 kg

DRUGS (22)
  1. RESTORIL [Concomitant]
     Active Substance: TEMAZEPAM
     Route: 065
  2. BONIVA [Suspect]
     Active Substance: IBANDRONATE SODIUM
     Route: 048
     Dates: start: 20141222
  3. PRAVACHOL [Concomitant]
     Active Substance: PRAVASTATIN SODIUM
     Route: 048
  4. OMEPRAZOLE. [Concomitant]
     Active Substance: OMEPRAZOLE
     Route: 048
  5. DIOVAN HCT [Concomitant]
     Active Substance: HYDROCHLOROTHIAZIDE\VALSARTAN
     Dosage: 80/12.5 MG
     Route: 065
  6. GABAPENTIN. [Concomitant]
     Active Substance: GABAPENTIN
     Route: 065
  7. BONIVA [Suspect]
     Active Substance: IBANDRONATE SODIUM
     Route: 048
     Dates: start: 20131219
  8. BONIVA [Suspect]
     Active Substance: IBANDRONATE SODIUM
     Route: 048
     Dates: start: 20140307
  9. ACETAMINOPHEN. [Concomitant]
     Active Substance: ACETAMINOPHEN
     Route: 048
  10. BONIVA [Suspect]
     Active Substance: IBANDRONATE SODIUM
     Route: 048
     Dates: start: 20140416
  11. FOSAMAX [Suspect]
     Active Substance: ALENDRONATE SODIUM
     Indication: PRODUCT USED FOR UNKNOWN INDICATION
     Route: 065
  12. CEFDINIR. [Concomitant]
     Active Substance: CEFDINIR
     Route: 048
  13. BONIVA [Suspect]
     Active Substance: IBANDRONATE SODIUM
     Route: 048
     Dates: start: 20081231
  14. BONIVA [Suspect]
     Active Substance: IBANDRONATE SODIUM
     Route: 048
     Dates: start: 20141222
  15. VALSARTAN/HYDROCHLOROTHIAZIDE AHCL [Concomitant]
     Dosage: 80MG?12.5 MG
     Route: 048
  16. CLONIDINE. [Concomitant]
     Active Substance: CLONIDINE
     Route: 065
  17. BONIVA [Suspect]
     Active Substance: IBANDRONATE SODIUM
     Indication: OSTEOPOROSIS
     Route: 048
  18. BONIVA [Suspect]
     Active Substance: IBANDRONATE SODIUM
     Route: 048
     Dates: start: 20080123
  19. ZETIA [Concomitant]
     Active Substance: EZETIMIBE
     Route: 048
  20. CELEXA [Concomitant]
     Active Substance: CITALOPRAM HYDROBROMIDE
     Route: 048
  21. BONIVA [Suspect]
     Active Substance: IBANDRONATE SODIUM
     Route: 048
     Dates: start: 20080930
  22. ALPRAZOLAM. [Concomitant]
     Active Substance: ALPRAZOLAM
     Route: 048

REACTIONS (17)
  - Emotional distress [Unknown]
  - Herpes virus infection [Unknown]
  - Foot fracture [Unknown]
  - Fatigue [Unknown]
  - Malaise [Unknown]
  - Insomnia [Unknown]
  - Joint dislocation [Unknown]
  - Pathological fracture [Unknown]
  - Spondylolisthesis [Unknown]
  - Cerebral thrombosis [Unknown]
  - Stress fracture [Unknown]
  - Urinary tract infection [Unknown]
  - Femur fracture [Unknown]
  - Cerebral infarction [Unknown]
  - Cystitis [Unknown]
  - Hormone level abnormal [Unknown]
  - Meniscus injury [Unknown]

NARRATIVE: CASE EVENT DATE: 20080814
